FAERS Safety Report 24008096 (Version 3)
Quarter: 2024Q3

REPORT INFORMATION
  Report Type: Spontaneous
  Country: US (occurrence: US)
  Receive Date: 20240625
  Receipt Date: 20240709
  Transmission Date: 20241016
  Serious: No
  Sender: ROCHE
  Company Number: US-ROCHE-3560903

PATIENT
  Age: 46 Year
  Sex: Male

DRUGS (1)
  1. ACTEMRA ACTPEN [Suspect]
     Active Substance: TOCILIZUMAB
     Indication: Rheumatoid arthritis
     Dosage: ACTEMRA ACTPEN 162MG/0.9ML
     Route: 058

REACTIONS (5)
  - Device failure [Unknown]
  - Accidental exposure to product [Unknown]
  - Device defective [Unknown]
  - Wrong technique in product usage process [Unknown]
  - No adverse event [Unknown]
